FAERS Safety Report 11009579 (Version 1)
Quarter: 2015Q2

REPORT INFORMATION
  Report Type: Spontaneous
  Country: US (occurrence: None)
  Receive Date: 20150409
  Receipt Date: 20150409
  Transmission Date: 20150821
  Serious: Yes (Other)
  Sender: FDA-Public Use
  Company Number: None

PATIENT
  Age: 31 Year
  Sex: Male
  Weight: 92.99 kg

DRUGS (12)
  1. CLOZARIL [Suspect]
     Active Substance: CLOZAPINE
     Indication: SCHIZOAFFECTIVE DISORDER
     Dates: start: 20110901, end: 20150408
  2. HALDOL [Suspect]
     Active Substance: HALOPERIDOL
  3. ABILIFY [Concomitant]
     Active Substance: ARIPIPRAZOLE
  4. VALERIAN ROOT [Concomitant]
     Active Substance: VALERIAN
  5. EFFEXOR [Concomitant]
     Active Substance: VENLAFAXINE HYDROCHLORIDE
  6. INVEGA [Suspect]
     Active Substance: PALIPERIDONE
  7. MULTI VITAMIN [Concomitant]
     Active Substance: VITAMINS
  8. CLOZARIL [Suspect]
     Active Substance: CLOZAPINE
     Indication: MAJOR DEPRESSION
     Dates: start: 20110901, end: 20150408
  9. VITAMIN D3 [Concomitant]
     Active Substance: CHOLECALCIFEROL
  10. CLOZARIL [Suspect]
     Active Substance: CLOZAPINE
     Indication: SCHIZOPHRENIA
     Dates: start: 20110901, end: 20150408
  11. ABILIFY [Concomitant]
     Active Substance: ARIPIPRAZOLE
  12. RISPERADOL [Concomitant]

REACTIONS (8)
  - Apathy [None]
  - Mental impairment [None]
  - Obsessive-compulsive disorder [None]
  - Weight increased [None]
  - Asthenia [None]
  - Anxiety [None]
  - Drooling [None]
  - Akathisia [None]

NARRATIVE: CASE EVENT DATE: 20110901
